FAERS Safety Report 5402795-7 (Version None)
Quarter: 2007Q3

REPORT INFORMATION
  Report Type: 
  Country: None (occurrence: None)
  Receive Date: 20070730
  Receipt Date: 20070726
  Transmission Date: 20080115
  Serious: Yes (Other)
  Sender: FDA-Public Use
  Company Number: 2007SP009391

PATIENT
  Age: 79 Year
  Sex: Male

DRUGS (7)
  1. NITRO-DUR [Suspect]
     Indication: ARTERIOSCLEROSIS
     Dosage: 0.4 MG; TDER
     Route: 062
     Dates: start: 20060815, end: 20060911
  2. PREDNISONE TAB [Concomitant]
  3. NOVOHYDRAZIDE [Concomitant]
  4. ALTACE [Concomitant]
  5. ASAPHEN [Concomitant]
  6. VENTOLIN [Concomitant]
  7. ADVAIR DISKUS 100/50 [Concomitant]

REACTIONS (4)
  - APATHY [None]
  - DISTURBANCE IN ATTENTION [None]
  - NIGHTMARE [None]
  - SUICIDE ATTEMPT [None]
